FAERS Safety Report 11692973 (Version 1)
Quarter: 2015Q4

REPORT INFORMATION
  Report Type: Spontaneous
  Country: US (occurrence: US)
  Receive Date: 20151103
  Receipt Date: 20151103
  Transmission Date: 20160304
  Serious: No
  Sender: FDA-Public Use
  Company Number: US-BIOGENIDEC-2015BI144443

PATIENT
  Sex: Female

DRUGS (1)
  1. TECFIDERA [Suspect]
     Active Substance: DIMETHYL FUMARATE
     Indication: MULTIPLE SCLEROSIS

REACTIONS (5)
  - Rectal haemorrhage [Recovered/Resolved]
  - Arthritis infective [Recovered/Resolved]
  - Urinary tract infection [Recovered/Resolved]
  - Mastitis [Recovered/Resolved]
  - Oral herpes [Unknown]
